FAERS Safety Report 4528081-5 (Version None)
Quarter: 2004Q4

REPORT INFORMATION
  Report Type: 
  Country: None (occurrence: None)
  Receive Date: 20041124
  Receipt Date: 20040406
  Transmission Date: 20050328
  Serious: Yes (Other)
  Sender: FDA-Public Use
  Company Number: 2003015457

PATIENT

DRUGS (3)
  1. TIKOSYN [Suspect]
     Indication: ATRIAL FIBRILLATION
     Dosage: ORAL
     Route: 048
     Dates: start: 20030401, end: 20030409
  2. UBIDECARENONE (UBIDECARENONE) [Concomitant]
  3. HERBAL PREPARATION (HERBAL PREPARATION) [Concomitant]

REACTIONS (1)
  - ATRIAL FIBRILLATION [None]
